FAERS Safety Report 5777245-1 (Version None)
Quarter: 2008Q2

REPORT INFORMATION
  Report Type: 
  Country: None (occurrence: None)
  Receive Date: 20080618
  Receipt Date: 20080609
  Transmission Date: 20081010
  Serious: Yes (Hospitalization)
  Sender: FDA-Public Use
  Company Number: US-ELI_LILLY_AND_COMPANY-US200805003376

PATIENT
  Sex: Female
  Weight: 106.58 kg

DRUGS (3)
  1. BYETTA [Suspect]
     Indication: TYPE 2 DIABETES MELLITUS
     Dosage: 5 UG, 2/D
     Route: 058
     Dates: start: 20070101, end: 20070101
  2. BYETTA [Suspect]
     Dosage: 10 UG, 2/D
     Route: 058
     Dates: start: 20070101
  3. GLIPIZIDE [Concomitant]

REACTIONS (5)
  - BACK PAIN [None]
  - BLOOD GLUCOSE DECREASED [None]
  - OSTEOARTHRITIS [None]
  - SPINAL COLUMN STENOSIS [None]
  - TREMOR [None]
